FAERS Safety Report 8614048-4 (Version None)
Quarter: 2012Q2

REPORT INFORMATION
  Report Type: 
  Country: None (occurrence: None)
  Receive Date: 20120423
  Receipt Date: 20100113
  Transmission Date: 20120825
  Serious: Yes (Other)
  Sender: FDA-Public Use
  Company Number: PHEH2007US16341

PATIENT
  Age: 69 Year
  Sex: Male
  Weight: 75 kg

DRUGS (2)
  1. EXJADE [Suspect]
     Indication: HAEMOCHROMATOSIS
     Dosage: 500 MG, TID, ORAL
     Route: 048
     Dates: start: 20060504, end: 20070611
  2. EXJADE [Suspect]
     Indication: THALASSAEMIA
     Dosage: 500 MG, TID, ORAL
     Route: 048
     Dates: start: 20060504, end: 20070611

REACTIONS (2)
  - RENAL FAILURE [None]
  - HEPATIC FAILURE [None]
